FAERS Safety Report 7420272-9 (Version None)
Quarter: 2011Q2

REPORT INFORMATION
  Report Type: 
  Country: None (occurrence: None)
  Receive Date: 20110406
  Receipt Date: 20110323
  Transmission Date: 20111010
  Serious: Yes (Life-Threatening, Hospitalization, Other)
  Sender: FDA-Public Use
  Company Number: 028474

PATIENT
  Sex: Male
  Weight: 69 kg

DRUGS (8)
  1. BLONANSERIN (LONASEN) [Suspect]
     Dosage: 2 MG ORAL, 4 MG ORAL, 6 MG ORAL
     Route: 048
     Dates: start: 20100315, end: 20100328
  2. BLONANSERIN (LONASEN) [Suspect]
     Dosage: 2 MG ORAL, 4 MG ORAL, 6 MG ORAL
     Route: 048
     Dates: start: 20100329, end: 20101129
  3. BLONANSERIN (LONASEN) [Suspect]
     Dosage: 2 MG ORAL, 4 MG ORAL, 6 MG ORAL
     Route: 048
     Dates: start: 20101130, end: 20110222
  4. KEPPRA [Suspect]
     Indication: EPILEPSY
     Dosage: 500 MG QD ORAL, 500 MG BID ORAL, 2000 MG ORAL
     Route: 048
     Dates: start: 20101130, end: 20110110
  5. KEPPRA [Suspect]
     Indication: EPILEPSY
     Dosage: 500 MG QD ORAL, 500 MG BID ORAL, 2000 MG ORAL
     Route: 048
     Dates: start: 20110111, end: 20110222
  6. KEPPRA [Suspect]
     Indication: EPILEPSY
     Dosage: 500 MG QD ORAL, 500 MG BID ORAL, 2000 MG ORAL
     Route: 048
     Dates: start: 20101126, end: 20101129
  7. PROMAC [Concomitant]
  8. MEDILAC-BEBE [Concomitant]

REACTIONS (2)
  - NEUROLEPTIC MALIGNANT SYNDROME [None]
  - RHABDOMYOLYSIS [None]
